FAERS Safety Report 8424432-X (Version None)
Quarter: 2012Q2

REPORT INFORMATION
  Report Type: 
  Country: None (occurrence: None)
  Receive Date: 20120608
  Receipt Date: 20120529
  Transmission Date: 20120825
  Serious: Yes (Other)
  Sender: FDA-Public Use
  Company Number: AR-AMGEN-ARGSP2012004241

PATIENT
  Age: 50 Year
  Sex: Female

DRUGS (3)
  1. ENBREL [Suspect]
     Indication: RHEUMATOID ARTHRITIS
     Dosage: 50 MG, WEEKLY
     Route: 058
     Dates: start: 20100623, end: 20111201
  2. ENBREL [Suspect]
     Dosage: UNK
     Dates: end: 20120201
  3. ENBREL [Suspect]
     Dosage: UNK

REACTIONS (2)
  - HEPATITIS [None]
  - URETHRITIS [None]
